FAERS Safety Report 16955263 (Version 1)
Quarter: 2019Q4

REPORT INFORMATION
  Report Type: Spontaneous
  Country: IT (occurrence: IT)
  Receive Date: 20191024
  Receipt Date: 20191024
  Transmission Date: 20200122
  Serious: Yes (Hospitalization)
  Sender: FDA-Public Use
  Company Number: IT-TEVA-2019-IT-1126076

PATIENT
  Age: 73 Year
  Sex: Male

DRUGS (2)
  1. GEMCITABINE. [Suspect]
     Active Substance: GEMCITABINE
     Indication: LEIOMYOSARCOMA
     Dosage: 1400 MG, CYCLICAL
     Route: 042
     Dates: start: 20190704, end: 20190704
  2. CARBOPLATIN. [Suspect]
     Active Substance: CARBOPLATIN
     Indication: LEIOMYOSARCOMA
     Dosage: 250 MG, CYCLICAL
     Route: 042
     Dates: start: 20190704, end: 20190704

REACTIONS (3)
  - Dyspnoea [Recovering/Resolving]
  - Q fever [Recovering/Resolving]
  - Respiratory failure [Recovering/Resolving]

NARRATIVE: CASE EVENT DATE: 20190709
